FAERS Safety Report 16869175 (Version 1)
Quarter: 2019Q3

REPORT INFORMATION
  Report Type: Spontaneous
  Country: DE (occurrence: DE)
  Receive Date: 20190930
  Receipt Date: 20190930
  Transmission Date: 20191005
  Serious: Yes (Congenital Anomaly, Other)
  Sender: FDA-Public Use
  Company Number: DE-ALLERGAN-1938910US

PATIENT
  Sex: Male
  Weight: 3.45 kg

DRUGS (3)
  1. CITALOPRAM HYDROBROMIDE - BP [Suspect]
     Active Substance: CITALOPRAM HYDROBROMIDE
     Indication: EXPOSURE DURING PREGNANCY
     Dosage: 20 [MG/D ]
     Route: 064
  2. L-THYROXIN [Concomitant]
     Active Substance: LEVOTHYROXINE SODIUM
     Indication: HYPOTHYROIDISM
     Dosage: 25 [?G/D ]
     Route: 064
  3. CITALOPRAM HYDROBROMIDE - BP [Suspect]
     Active Substance: CITALOPRAM HYDROBROMIDE
     Indication: PANIC ATTACK

REACTIONS (5)
  - Respiratory disorder neonatal [Recovered/Resolved]
  - Hypospadias [Not Recovered/Not Resolved]
  - Cryptorchism [Unknown]
  - Foetal exposure during pregnancy [Unknown]
  - Product use in unapproved indication [Unknown]

NARRATIVE: CASE EVENT DATE: 20181230
